FAERS Safety Report 8548474-9 (Version None)
Quarter: 2012Q3

REPORT INFORMATION
  Report Type: 
  Country: None (occurrence: None)
  Receive Date: 20120717
  Receipt Date: 20120703
  Transmission Date: 20120928
  Serious: Yes (Hospitalization)
  Sender: FDA-Public Use
  Company Number: CA-008838

PATIENT
  Age: 82 Year
  Sex: Male
  Weight: 88.9 kg

DRUGS (4)
  1. INSULIN [Concomitant]
  2. CRESTOR [Concomitant]
  3. FIRMAGON [Suspect]
     Indication: PROSTATE CANCER
     Dosage: (80 MG 1X/MONTH SUBCUTANEOUS)
     Route: 058
     Dates: start: 20120119
  4. METFORMIN HYDROCHLORIDE [Concomitant]

REACTIONS (2)
  - DEVICE OCCLUSION [None]
  - DYSURIA [None]
